FAERS Safety Report 7565927-0 (Version None)
Quarter: 2011Q2

REPORT INFORMATION
  Report Type: 
  Country: None (occurrence: None)
  Receive Date: 20110623
  Receipt Date: 20110609
  Transmission Date: 20111010
  Serious: Yes (Other)
  Sender: FDA-Public Use
  Company Number: IE-MYLANLABS-2011S1012094

PATIENT
  Age: 38 Year
  Sex: Female
  Weight: 70 kg

DRUGS (9)
  1. SEVOFLURANE [Suspect]
     Indication: MAINTENANCE OF ANAESTHESIA
     Dosage: IN OXYGEN AND NITROUS OXIDE IN A RATIO OF 60:40 RESPECTIVELY
     Route: 065
  2. ROCURONIUM BROMIDE [Suspect]
     Indication: GENERAL ANAESTHESIA
     Dosage: SINGLE DOSE ADMINISTERED PRIOR TO INTUBATION
     Route: 065
  3. RANITIDINE [Concomitant]
     Dosage: RECEIVED 1H PREOPERATIVELY
     Route: 048
  4. ACETAMINOPHEN [Concomitant]
     Dosage: 1G RECEIVED INTRAOPERATIVELY
     Route: 042
  5. MORPHINE [Concomitant]
     Dosage: 10MG RECEIVED INTRAOPERATIVELY
     Route: 042
  6. DICLOFENAC SODIUM [Concomitant]
     Dosage: 100MG RECEIVED INTRAOPERATIVELY
     Route: 054
  7. OXYTOCIN [Concomitant]
     Dosage: 5U BOLUS GIVEN AT DELIVERY; FOLLOWED BY INFUSION OF 40U OVER 4 H
     Route: 065
  8. THIOPENTAL SODIUM [Concomitant]
     Indication: GENERAL ANAESTHESIA
     Dosage: 5 MG/KG
     Route: 065
  9. OXYTOCIN [Concomitant]
     Dosage: INFUSION OF 40U OVER 4H
     Route: 065

REACTIONS (1)
  - NEUROMUSCULAR BLOCK PROLONGED [None]
